FAERS Safety Report 15160037 (Version 2)
Quarter: 2018Q3

REPORT INFORMATION
  Report Type: Spontaneous
  Country: GB (occurrence: DE)
  Receive Date: 20180718
  Receipt Date: 20180801
  Transmission Date: 20181010
  Serious: Yes (Life-Threatening, Hospitalization)
  Sender: FDA-Public Use
  Company Number: DE-FRESENIUS KABI-FK201807869

PATIENT
  Age: 21 Year
  Sex: Male

DRUGS (12)
  1. LINEZOLID (MANUFACTURER UNKNOWN) [Suspect]
     Active Substance: LINEZOLID
     Indication: PNEUMONIA STAPHYLOCOCCAL
     Dosage: LINEZOLIDE 600MG DAILY DOSE: 2 DF DOSAGE FORM EVERY DAYS
     Route: 042
     Dates: start: 20180315, end: 20180318
  2. IVABRADINE [Concomitant]
     Active Substance: IVABRADINE
     Dosage: DAILY DOSE: 15 MG MILLGRAM(S) EVERY DAYS
  3. SULFAMETHOXAZOLE/TRIMETHOPRIM [Concomitant]
     Dosage: DAILY DOSE: 2 DF DOSAGE FORM EVERY DAYS
     Route: 042
     Dates: start: 20180315, end: 20180319
  4. BACLOFEN. [Concomitant]
     Active Substance: BACLOFEN
  5. LORAZEPAM. [Concomitant]
     Active Substance: LORAZEPAM
     Dosage: DAILY DOSE: 1 MG MILLGRAM(S) EVERY DAYS
  6. ESOMEPRAZOLE [Interacting]
     Active Substance: ESOMEPRAZOLE
     Indication: PRODUCT USED FOR UNKNOWN INDICATION
     Route: 065
  7. HYOSCINE HYDROBROMIDE [Concomitant]
     Active Substance: SCOPOLAMINE
     Route: 062
  8. LEVETIRACETAM. [Concomitant]
     Active Substance: LEVETIRACETAM
     Dosage: DAILY DOSE: 2 DF DOSAGE FORM EVERY DAYS
  9. PREDNISOLONE. [Concomitant]
     Active Substance: PREDNISOLONE
  10. NALOXONE/TILIDINE [Concomitant]
  11. LEVOTHYROXINE SODIUM. [Concomitant]
     Active Substance: LEVOTHYROXINE SODIUM
  12. ESCITALOPRAM [Interacting]
     Active Substance: ESCITALOPRAM OXALATE
     Indication: PRODUCT USED FOR UNKNOWN INDICATION
     Dosage: UNK
     Route: 065

REACTIONS (4)
  - Drug interaction [Not Recovered/Not Resolved]
  - Status epilepticus [Not Recovered/Not Resolved]
  - Body temperature increased [Not Recovered/Not Resolved]
  - Serotonin syndrome [Not Recovered/Not Resolved]

NARRATIVE: CASE EVENT DATE: 20180317
